FAERS Safety Report 15836940 (Version 1)
Quarter: 2019Q1

REPORT INFORMATION
  Report Type: Spontaneous
  Country: FR (occurrence: FR)
  Receive Date: 20190117
  Receipt Date: 20190117
  Transmission Date: 20190417
  Serious: Yes (Other)
  Sender: FDA-Public Use
  Company Number: FR-ABBVIE-19S-056-2624292-00

PATIENT
  Age: 29 Year
  Sex: Female
  Weight: 82 kg

DRUGS (5)
  1. NORVIR [Suspect]
     Active Substance: RITONAVIR
     Indication: HIV INFECTION
     Route: 048
     Dates: start: 20180104
  2. PREZISTA [Interacting]
     Active Substance: DARUNAVIR ETHANOLATE
     Indication: HIV INFECTION
     Dosage: 800 MG, COMPRIM? PELLICUL?
     Route: 048
     Dates: start: 20180104
  3. DAILY [Concomitant]
     Active Substance: ETHINYL ESTRADIOL\LEVONORGESTREL
     Indication: PRODUCT USED FOR UNKNOWN INDICATION
  4. ENTOCORT [Interacting]
     Active Substance: BUDESONIDE
     Indication: CROHN^S DISEASE
     Dosage: 3 MG, MICROGRANULES GASTROR?SISTANTS EN G?LULE
     Route: 048
     Dates: start: 20171223, end: 20180213
  5. ABACAVIR LAMIVUDINE MYLAN PHARMA [Concomitant]
     Indication: PRODUCT USED FOR UNKNOWN INDICATION

REACTIONS (1)
  - Hypercorticoidism [Recovering/Resolving]

NARRATIVE: CASE EVENT DATE: 201802
